FAERS Safety Report 15607044 (Version 2)
Quarter: 2019Q1

REPORT INFORMATION
  Report Type: Spontaneous
  Country: US (occurrence: US)
  Receive Date: 20181112
  Receipt Date: 20190228
  Transmission Date: 20190417
  Serious: Yes (Other)
  Sender: FDA-Public Use
  Company Number: US-BAYER-2018-208326

PATIENT
  Sex: Female
  Weight: 68 kg

DRUGS (2)
  1. MIRENA [Suspect]
     Active Substance: LEVONORGESTREL
  2. MIRENA [Suspect]
     Active Substance: LEVONORGESTREL
     Dosage: 20 MCG/24HR, CONT
     Route: 015
     Dates: start: 20131126, end: 20181101

REACTIONS (4)
  - Device dislocation [None]
  - Vaginal haemorrhage [None]
  - Genital haemorrhage [None]
  - Uterine haemorrhage [None]

NARRATIVE: CASE EVENT DATE: 2017
